FAERS Safety Report 22064310 (Version 2)
Quarter: 2023Q1

REPORT INFORMATION
  Report Type: Spontaneous
  Country: CA (occurrence: CA)
  Receive Date: 20230306
  Receipt Date: 20230317
  Transmission Date: 20230418
  Serious: Yes (Other)
  Sender: FDA-Public Use
  Company Number: CA-PFIZER INC-202200894539

PATIENT
  Age: 26 Year
  Sex: Male
  Weight: 79.728 kg

DRUGS (7)
  1. RUXIENCE [Suspect]
     Active Substance: RITUXIMAB-PVVR
     Indication: Encephalitis autoimmune
     Dosage: 1000 MG, EVERY 2 WEEKS, 2 DOSES OF 1000 MG 2 WEEKS, APART, THEN 1000 MG EVERY 6 MONTHS
     Route: 042
     Dates: start: 20220913, end: 20220926
  2. RUXIENCE [Suspect]
     Active Substance: RITUXIMAB-PVVR
     Dosage: 1000 MG, EVERY 2 WEEKS, 2 DOSES OF 1000 MG 2 WEEKS, APART, THEN 1000 MG EVERY 6 MONTHS
     Route: 042
     Dates: start: 20220926
  3. RUXIENCE [Suspect]
     Active Substance: RITUXIMAB-PVVR
     Dosage: 1000 MG, EVERY 2 WEEKS, 2 DOSES OF 1000 MG 2 WEEKS, APART, THEN 1000 MG EVERY 6 MONTHS
     Route: 042
     Dates: start: 20230313, end: 20230313
  4. HUMALOG [Concomitant]
     Active Substance: INSULIN LISPRO
     Dosage: 1 DF
     Route: 058
     Dates: start: 20050901
  5. PREDNISONE [Concomitant]
     Active Substance: PREDNISONE
     Dosage: 50 MG , (TAPERING OVER 6 MONTHS)
     Route: 048
     Dates: start: 20220704, end: 202212
  6. PREDNISONE [Concomitant]
     Active Substance: PREDNISONE
     Dosage: 30 MG
     Route: 048
     Dates: start: 20220704
  7. TRESIBA [Concomitant]
     Active Substance: INSULIN DEGLUDEC
     Dosage: 26 IU
     Route: 058
     Dates: start: 20200901

REACTIONS (3)
  - Addison^s disease [Not Recovered/Not Resolved]
  - Therapeutic product effect incomplete [Unknown]
  - Off label use [Unknown]

NARRATIVE: CASE EVENT DATE: 20230201
